FAERS Safety Report 20240242 (Version 1)
Quarter: 2021Q4

REPORT INFORMATION
  Report Type: Spontaneous
  Country: None (occurrence: US)
  Receive Date: 20211228
  Receipt Date: 20211228
  Transmission Date: 20220304
  Serious: No
  Sender: FDA-Public Use
  Company Number: US-Matrixx Initiatives, Inc.-2123434

PATIENT
  Age: 62 Year
  Sex: Female
  Weight: 77.273 kg

DRUGS (5)
  1. ZICAM NOS [Suspect]
     Active Substance: ECHINACEA ANGUSTIFOLIA\HOMEOPATHICS\ZINC ACETATE\ZINC GLUCONATE OR HOMEOPATHICS\ZINC ACETATE\ZINC GL
     Indication: Nasopharyngitis
     Dates: start: 20211226, end: 20211227
  2. METFORMIN [Concomitant]
     Active Substance: METFORMIN HYDROCHLORIDE
  3. Gamma Globulin infusions history [Concomitant]
  4. Unspecified fibromyalgia medication [Concomitant]
  5. Unspecified osteoarthritis medication [Concomitant]

REACTIONS (2)
  - Ageusia [Recovered/Resolved]
  - Anosmia [None]
